FAERS Safety Report 13756279 (Version 1)
Quarter: 2017Q3

REPORT INFORMATION
  Report Type: Spontaneous
  Country: AE (occurrence: AE)
  Receive Date: 20170714
  Receipt Date: 20170714
  Transmission Date: 20171127
  Serious: Yes (Hospitalization, Other)
  Sender: FDA-Public Use
  Company Number: AE-ASTELLAS-2017US026799

PATIENT
  Age: 62 Year
  Sex: Female

DRUGS (4)
  1. MYCOPHENOLATE [Suspect]
     Active Substance: MYCOPHENOLIC ACID
     Indication: RENAL TRANSPLANT
     Route: 065
  2. PREDNISOLONE. [Suspect]
     Active Substance: PREDNISOLONE
     Indication: RENAL TRANSPLANT
     Route: 065
  3. TACROLIMUS. [Suspect]
     Active Substance: TACROLIMUS
     Indication: RENAL TRANSPLANT
     Route: 065
  4. TIGECYCLINE. [Suspect]
     Active Substance: TIGECYCLINE
     Indication: URINARY TRACT INFECTION
     Dosage: UNK UNK, UNKNOWN FREQ.
     Route: 065

REACTIONS (18)
  - Gastrointestinal haemorrhage [Unknown]
  - Pneumonia necrotising [Recovering/Resolving]
  - Urinary tract infection [Recovered/Resolved]
  - Klebsiella infection [Recovered/Resolved]
  - Cardiac arrest [Unknown]
  - Pancreatitis acute [Unknown]
  - Candida infection [Recovering/Resolving]
  - Streptococcal infection [Recovering/Resolving]
  - Renal impairment [Unknown]
  - Enterococcal infection [Unknown]
  - Escherichia infection [Recovering/Resolving]
  - Staphylococcal infection [Recovering/Resolving]
  - Hypoxia [Unknown]
  - Subcutaneous abscess [Recovering/Resolving]
  - Pancreatic pseudocyst [Unknown]
  - Abscess limb [Recovering/Resolving]
  - Sepsis [Unknown]
  - Klebsiella infection [Recovering/Resolving]
